FAERS Safety Report 14280825 (Version 1)
Quarter: 2017Q4

REPORT INFORMATION
  Report Type: Spontaneous
  Country: US (occurrence: US)
  Receive Date: 20171213
  Receipt Date: 20171213
  Transmission Date: 20180321
  Serious: Yes (Death)
  Sender: FDA-Public Use
  Company Number: None

PATIENT
  Age: 58 Year
  Sex: Male
  Weight: 87.7 kg

DRUGS (11)
  1. CABOZANTINIB [Suspect]
     Active Substance: CABOZANTINIB
     Indication: RENAL CANCER
     Dates: start: 20170207, end: 20170910
  2. ALLOPURINOL. [Concomitant]
     Active Substance: ALLOPURINOL
  3. CLOBETASOL OINTMENT [Concomitant]
     Active Substance: CLOBETASOL
  4. BUMETANIDE. [Concomitant]
     Active Substance: BUMETANIDE
  5. LXEKIZUMAB [Concomitant]
  6. NAPROXEN. [Concomitant]
     Active Substance: NAPROXEN
  7. CALCIPOTRIENE. [Concomitant]
     Active Substance: CALCIPOTRIENE
  8. DOXAZOSIN [Concomitant]
     Active Substance: DOXAZOSIN\DOXAZOSIN MESYLATE
  9. AMLODIPINE [Concomitant]
     Active Substance: AMLODIPINE BESYLATE
  10. PROCRIT [Concomitant]
     Active Substance: ERYTHROPOIETIN
  11. LEVOTHYROXINE. [Concomitant]
     Active Substance: LEVOTHYROXINE

REACTIONS (11)
  - Loss of consciousness [None]
  - Subarachnoid haemorrhage [None]
  - Lethargy [None]
  - Posturing [None]
  - Quality of life decreased [None]
  - Ventricular fibrillation [None]
  - Cardiac arrest [None]
  - Brain midline shift [None]
  - Intracranial aneurysm [None]
  - Subdural haemorrhage [None]
  - Brain herniation [None]

NARRATIVE: CASE EVENT DATE: 20170921
